FAERS Safety Report 9285463 (Version 2)
Quarter: 2013Q2

REPORT INFORMATION
  Report Type: Spontaneous
  Country: SE (occurrence: None)
  Receive Date: 20130506
  Receipt Date: 20130626
  Transmission Date: 20140414
  Serious: Yes (Hospitalization)
  Sender: FDA-Public Use
  Company Number: SYM-2013-03489

PATIENT
  Age: 43 Year
  Sex: Female

DRUGS (19)
  1. 5-FU [Suspect]
     Indication: COLORECTAL CANCER METASTATIC
     Route: 040
     Dates: start: 20130306, end: 20130306
  2. AFLIBERCEPT (AFLIBERCEPT) (SOLUTION FOR INFUSION) (AFLIBERCEPT) [Suspect]
     Indication: COLORECTAL CANCER METASTATIC
     Route: 041
     Dates: start: 20130306, end: 20130306
  3. IRINOTECAN [Suspect]
     Indication: COLORECTAL CANCER METASTATIC
     Route: 041
     Dates: start: 20130306, end: 20130306
  4. LEUCOVORIN [Suspect]
     Indication: COLORECTAL CANCER METASTATIC
     Route: 041
     Dates: start: 20130306, end: 20130306
  5. SEROTONIN ANTAGONISTS (SEROTONIN ANTAGONISTS) [Concomitant]
  6. CORTICOSTEROIDS [Concomitant]
  7. ANTICHOLINERGIC AGENTS [Concomitant]
  8. G-CSF (GRANULOCYTE COLONY STIMULATING FACTOR) [Concomitant]
  9. METOCLOPRAMIDE [Concomitant]
  10. LOPERAMIDE [Concomitant]
  11. ANALGESICS [Concomitant]
  12. MOVICOL [Concomitant]
  13. P.A.S. NATRIUM (AMINOSALICYLATE SODIUM) [Concomitant]
  14. CYKLO-F (TRANEXAMIC ACID) [Concomitant]
  15. DIAZEPAM [Concomitant]
  16. ANTIHISTAMINES (ANTIHISTAMINES) [Concomitant]
  17. PROGESTERON [Concomitant]
  18. MECLIZINE [Concomitant]
  19. ANTIFUNGALS (ANTIFUNGALS FOR DERMATOLOGICAL USE) [Concomitant]

REACTIONS (4)
  - Anaemia [None]
  - Hypophagia [None]
  - Dehydration [None]
  - Anaemia [None]
